FAERS Safety Report 20197673 (Version 8)
Quarter: 2024Q1

REPORT INFORMATION
  Report Type: Other
  Country: GB (occurrence: GB)
  Receive Date: 20211217
  Receipt Date: 20240327
  Transmission Date: 20240410
  Serious: Yes (Life-Threatening, Other)
  Sender: FDA-Public Use
  Company Number: None

PATIENT

DRUGS (17)
  1. PROPOFOL [Suspect]
     Active Substance: PROPOFOL
     Indication: Anaesthesia
     Dosage: PROPOFOL 20MG/ML EMULSION FOR INJECTION/INFUSION, QD, SINGLE
     Route: 042
     Dates: start: 20211129, end: 20211129
  2. PROPOFOL [Suspect]
     Active Substance: PROPOFOL
     Dosage: 200 MG, QD
     Route: 042
     Dates: start: 20211129, end: 20211129
  3. DEXAMETHASONE [Suspect]
     Active Substance: DEXAMETHASONE
     Indication: Anaesthesia
     Dosage: UNK
     Route: 042
     Dates: start: 20211129, end: 20211129
  4. DEXAMETHASONE [Suspect]
     Active Substance: DEXAMETHASONE
     Dosage: UNK, QD
     Route: 042
     Dates: start: 20211129
  5. CHLORAPREP [Suspect]
     Active Substance: CHLORHEXIDINE GLUCONATE\ISOPROPYL ALCOHOL
     Indication: Anaesthesia
     Dosage: UNK (CHLORHEXIDINE GLUCONATE 20%, ISOPROPANOL 99%)
     Route: 065
     Dates: start: 20211129, end: 20211129
  6. CHLORAPREP [Suspect]
     Active Substance: CHLORHEXIDINE GLUCONATE\ISOPROPYL ALCOHOL
     Dosage: UNK (CHLORHEXIDINE GLUCONATE 20%, ISOPROPANOL 99%)
     Route: 065
     Dates: start: 20211129
  7. FENTANYL [Suspect]
     Active Substance: FENTANYL\FENTANYL CITRATE
     Indication: Anaesthesia
     Dosage: 100 MICROGRAM, SINGLE
     Route: 042
     Dates: start: 20211129, end: 20211129
  8. FENTANYL CITRATE [Suspect]
     Active Substance: FENTANYL CITRATE
     Indication: Anaesthesia
     Dosage: 100 MCG, QD, SINGLE
     Route: 042
     Dates: start: 20211129, end: 20211129
  9. GENTAMICIN [Suspect]
     Active Substance: GENTAMICIN
     Indication: Anaesthesia
     Dosage: 160 MG, QD, SINGLE
     Route: 042
     Dates: start: 20211129, end: 20211129
  10. GENTAMICIN [Suspect]
     Active Substance: GENTAMICIN
     Dosage: 160 MG, QD, SINGLE
     Route: 042
     Dates: start: 20211129
  11. LEVOBUPIVACAINE [Suspect]
     Active Substance: LEVOBUPIVACAINE
     Indication: Anaesthesia
     Dosage: 0.5 %, QD, SINGLE
     Route: 058
     Dates: start: 20211129, end: 20211129
  12. TEICOPLANIN [Suspect]
     Active Substance: TEICOPLANIN
     Indication: Anaesthesia
     Dosage: 800 MG, QD, SINGLE
     Route: 042
     Dates: start: 20211129, end: 20211129
  13. TEICOPLANIN [Suspect]
     Active Substance: TEICOPLANIN
     Dosage: 800 MG, QD, SINGLE
     Route: 042
     Dates: start: 20211129
  14. EPINEPHRINE [Suspect]
     Active Substance: EPINEPHRINE
     Indication: Product used for unknown indication
     Dosage: 5-10MIN OF AFTER INDUCTION OF ANAESTHESIA
     Route: 042
     Dates: start: 20211129, end: 20211129
  15. ACETAMINOPHEN [Suspect]
     Active Substance: ACETAMINOPHEN
     Indication: Anaesthesia
     Dosage: 10-20 MILLILITER, SINGLE, QD
     Route: 042
     Dates: start: 20211129, end: 20211129
  16. ACETAMINOPHEN [Suspect]
     Active Substance: ACETAMINOPHEN
     Dosage: UNK (10-20 ML GIVEN)
     Route: 042
     Dates: start: 20211129, end: 20211129
  17. EPINEPHRINE [Concomitant]
     Active Substance: EPINEPHRINE
     Indication: Anaphylaxis treatment
     Dosage: UNK (5-10MIN OF AFTER INDUCTION OF ANAESTHESIA)
     Route: 065

REACTIONS (6)
  - Off label use [Unknown]
  - Product use in unapproved indication [Unknown]
  - Anaphylactic reaction [Recovered/Resolved]
  - Rash [Unknown]
  - Hypotension [Unknown]
  - Bronchospasm [Unknown]

NARRATIVE: CASE EVENT DATE: 20211129
